FAERS Safety Report 10067204 (Version 1)
Quarter: 2014Q2

REPORT INFORMATION
  Report Type: Spontaneous
  Country: US (occurrence: None)
  Receive Date: 20140408
  Receipt Date: 20140408
  Transmission Date: 20141212
  Serious: Yes (Other)
  Sender: FDA-Public Use
  Company Number: None

PATIENT
  Age: 17 Year
  Sex: Female
  Weight: 59.42 kg

DRUGS (1)
  1. DILANTIN [Suspect]

REACTIONS (4)
  - Extrasystoles [None]
  - Cardiovascular disorder [None]
  - Adverse drug reaction [None]
  - Balance disorder [None]
